FAERS Safety Report 21359826 (Version 3)
Quarter: 2022Q3

REPORT INFORMATION
  Report Type: Spontaneous
  Country: US (occurrence: US)
  Receive Date: 20220921
  Receipt Date: 20220923
  Transmission Date: 20221027
  Serious: No
  Sender: FDA-Public Use
  Company Number: US-PFIZER INC-202201177127

PATIENT
  Age: 86 Year
  Sex: Male
  Weight: 70.76 kg

DRUGS (3)
  1. PAXLOVID [Suspect]
     Active Substance: NIRMATRELVIR\RITONAVIR
     Indication: COVID-19 treatment
     Dosage: 400 MG, 2X/DAY (3 IN THE MORNING AND 3 IN THE EVENING)
     Route: 048
     Dates: start: 20220918
  2. FLOMAX [Concomitant]
     Active Substance: TAMSULOSIN HYDROCHLORIDE
     Indication: Prostatic disorder
     Dosage: UNK
  3. AMOXICILLIN [Concomitant]
     Active Substance: AMOXICILLIN
     Indication: Sinusitis
     Dosage: UNK, 2X/DAY (875-125MG TWICE DAILY)
     Dates: start: 20220916

REACTIONS (6)
  - Dysgeusia [Unknown]
  - Ageusia [Unknown]
  - Taste disorder [Recovered/Resolved]
  - Pyrexia [Unknown]
  - Nocturia [Unknown]
  - Hyperhidrosis [Unknown]

NARRATIVE: CASE EVENT DATE: 20220901
